FAERS Safety Report 10180614 (Version 1)
Quarter: 2014Q2

REPORT INFORMATION
  Report Type: Spontaneous
  Country: US (occurrence: US)
  Receive Date: 20140519
  Receipt Date: 20140519
  Transmission Date: 20141212
  Serious: No
  Sender: FDA-Public Use
  Company Number: US-AMGEN INC.-USASP2014019606

PATIENT
  Age: 81 Year
  Sex: Female

DRUGS (3)
  1. PROLIA [Suspect]
     Indication: OSTEOPOROSIS POSTMENOPAUSAL
     Dosage: UNK
     Route: 065
     Dates: start: 201311
  2. VITAMIN C                          /00008001/ [Concomitant]
  3. VITAMIN D                          /00107901/ [Concomitant]

REACTIONS (3)
  - Sleep disorder [Unknown]
  - Pruritus [Not Recovered/Not Resolved]
  - Rash [Unknown]
